FAERS Safety Report 18014292 (Version 1)
Quarter: 2020Q3

REPORT INFORMATION
  Report Type: Spontaneous
  Country: US (occurrence: US)
  Receive Date: 20200713
  Receipt Date: 20200713
  Transmission Date: 20201103
  Serious: Yes (Death)
  Sender: FDA-Public Use
  Company Number: None

PATIENT
  Age: 49 Year
  Sex: Male
  Weight: 162 kg

DRUGS (18)
  1. CALCIUM CHLORIDE 19 IV X1 [Concomitant]
     Dates: end: 20200710
  2. NS CONTINUOUS INFUSION 20ML/HR [Concomitant]
  3. DEXAMETHASONE 6 MG LV DAILY [Concomitant]
     Dates: start: 20200701, end: 20200710
  4. ALBUMIN 5% 250 ML X 2 [Concomitant]
  5. REMDESIVIR. [Suspect]
     Active Substance: REMDESIVIR
     Indication: COVID-19
     Dates: start: 20200628, end: 20200701
  6. PERIDEX MOUTH WASH 15 ML BID [Concomitant]
     Dates: start: 20200806, end: 20200710
  7. CEFEPIME 19 IV Q8H [Concomitant]
     Dates: end: 20200710
  8. EPINEPHRINE 0.1MG/KG LE1 [Concomitant]
     Dates: end: 20200710
  9. NOREPINEPHRINE LV CONTINUOUS INFUSION TITRATED [Concomitant]
     Dates: end: 20200710
  10. METOCLOPRAMIDE 5 MG LV Q8H [Concomitant]
     Dates: start: 20200708
  11. HYPERTONIC SALINE LV CONTINUOUS INFUSION [Concomitant]
     Dates: end: 20200710
  12. ASPIRIN 81 MG DAILY [Concomitant]
     Dates: start: 20200708, end: 20200710
  13. FUROSEMIDE 40 MG IV Q12H [Concomitant]
     Dates: end: 20200710
  14. INSULIN LV CONTINUOUS INFUSION TITRATED [Concomitant]
     Dates: end: 20200710
  15. FAMOTIDINE 20 MG LV DAILY [Concomitant]
     Dates: end: 20200710
  16. MIDAZOLAM LV CONTINUOUS INFUSION TITRATED [Concomitant]
     Dates: end: 20200710
  17. ESMOLOL IV CONTINUOUS INFUSION TITRATED [Concomitant]
     Dates: end: 20200710
  18. FENTANYL LV CONTINUOUS INFUSION TITRATED [Concomitant]
     Dates: end: 20200710

REACTIONS (3)
  - COVID-19 [None]
  - Disease complication [None]
  - Haemorrhagic stroke [None]

NARRATIVE: CASE EVENT DATE: 20200710
